FAERS Safety Report 16843312 (Version 1)
Quarter: 2019Q3

REPORT INFORMATION
  Report Type: Spontaneous
  Country: US (occurrence: US)
  Receive Date: 20190924
  Receipt Date: 20190924
  Transmission Date: 20191005
  Serious: No
  Sender: FDA-Public Use
  Company Number: US-KARYOPHARM-2019KPT000378

PATIENT

DRUGS (2)
  1. XPOVIO [Suspect]
     Active Substance: SELINEXOR
     Indication: PLASMA CELL MYELOMA
     Dosage: 80 MG, 2X/WEEK
     Route: 048
     Dates: start: 20190727, end: 20190808
  2. XPOVIO [Suspect]
     Active Substance: SELINEXOR
     Dosage: UNK
     Route: 048
     Dates: start: 20190902

REACTIONS (6)
  - Feeling cold [Unknown]
  - Fatigue [Unknown]
  - Dizziness [Unknown]
  - Nausea [Unknown]
  - Thrombocytopenia [Unknown]
  - Contusion [Unknown]
